FAERS Safety Report 6123843-5 (Version None)
Quarter: 2009Q1

REPORT INFORMATION
  Report Type: 
  Country: None (occurrence: None)
  Receive Date: 20090319
  Receipt Date: 20090312
  Transmission Date: 20090719
  Serious: Yes (Hospitalization)
  Sender: FDA-Public Use
  Company Number: FR-ASTRAZENECA-2009CG00527

PATIENT
  Age: 25888 Day

DRUGS (9)
  1. MOPRAL [Suspect]
     Route: 048
     Dates: start: 20081021, end: 20081023
  2. DAFALGAN [Suspect]
     Route: 048
     Dates: start: 20081021, end: 20081023
  3. PERFALGAN [Suspect]
     Route: 042
     Dates: start: 20081021, end: 20081023
  4. MORPHINE RENAUDIN [Suspect]
     Route: 042
     Dates: start: 20081021, end: 20081023
  5. ACUPAN [Suspect]
     Route: 042
     Dates: start: 20081021, end: 20081023
  6. ZYVOXID [Suspect]
     Route: 042
     Dates: start: 20081023, end: 20081024
  7. LASIX [Concomitant]
  8. ADRENALINE [Concomitant]
     Route: 042
  9. NORADRENALINE [Concomitant]
     Route: 042

REACTIONS (1)
  - ACUTE GENERALISED EXANTHEMATOUS PUSTULOSIS [None]
